FAERS Safety Report 11463594 (Version 1)
Quarter: 2015Q3

REPORT INFORMATION
  Report Type: Spontaneous
  Country: US (occurrence: US)
  Receive Date: 20150831
  Receipt Date: 20150831
  Transmission Date: 20151125
  Serious: No
  Sender: FDA-Public Use
  Company Number: US-ELI_LILLY_AND_COMPANY-US201012003604

PATIENT
  Sex: Female

DRUGS (13)
  1. HUMALOG [Concomitant]
     Active Substance: INSULIN LISPRO
  2. RITALIN [Concomitant]
     Active Substance: METHYLPHENIDATE HYDROCHLORIDE
  3. TRAZODONE [Concomitant]
     Active Substance: TRAZODONE HYDROCHLORIDE
  4. OMEPRAZOLE. [Concomitant]
     Active Substance: OMEPRAZOLE
  5. CYMBALTA [Suspect]
     Active Substance: DULOXETINE HYDROCHLORIDE
     Indication: DEPRESSION
     Dosage: 90 MG, DAILY (1/D)
     Dates: start: 201007, end: 201009
  6. LIPITOR [Concomitant]
     Active Substance: ATORVASTATIN CALCIUM
  7. LISINOPRIL. [Concomitant]
     Active Substance: LISINOPRIL
  8. AMBIEN [Concomitant]
     Active Substance: ZOLPIDEM TARTRATE
  9. CYMBALTA [Suspect]
     Active Substance: DULOXETINE HYDROCHLORIDE
     Dosage: 60 MG, DAILY (1/D)
     Dates: start: 201009
  10. METOPROLOL [Concomitant]
     Active Substance: METOPROLOL
  11. LANTUS [Concomitant]
     Active Substance: INSULIN GLARGINE
  12. ALPRAZOLAM. [Concomitant]
     Active Substance: ALPRAZOLAM
  13. HYDROCODONE BITARTRATE AND ACETAMINOPHEN [Concomitant]
     Active Substance: ACETAMINOPHEN\HYDROCODONE BITARTRATE
     Indication: HEADACHE

REACTIONS (30)
  - Skin swelling [Unknown]
  - Photophobia [Unknown]
  - Decreased appetite [Unknown]
  - Restlessness [Unknown]
  - Visual impairment [Unknown]
  - Dizziness [Unknown]
  - Depression [Unknown]
  - Sinusitis [Unknown]
  - Anxiety [Unknown]
  - Tremor [Unknown]
  - Dysgeusia [Unknown]
  - Chills [Unknown]
  - Muscle twitching [Unknown]
  - Tinnitus [Unknown]
  - Asthenia [Unknown]
  - Fear [Unknown]
  - Dyskinesia [Unknown]
  - Insomnia [Unknown]
  - Retching [Unknown]
  - Blood glucose abnormal [Unknown]
  - Eye pain [Unknown]
  - Balance disorder [Unknown]
  - Hallucination, auditory [Unknown]
  - Vision blurred [Unknown]
  - Drug ineffective [Not Recovered/Not Resolved]
  - Muscle spasms [Not Recovered/Not Resolved]
  - Pyrexia [Unknown]
  - Panic reaction [Unknown]
  - Palpitations [Unknown]
  - Diarrhoea [Unknown]
